FAERS Safety Report 4382620-6 (Version None)
Quarter: 2004Q2

REPORT INFORMATION
  Report Type: 
  Country: None (occurrence: None)
  Receive Date: 20040617
  Receipt Date: 20040601
  Transmission Date: 20050107
  Serious: Yes (Hospitalization)
  Sender: FDA-Public Use
  Company Number: 2004217758JP

PATIENT
  Age: 80 Year
  Sex: Male

DRUGS (5)
  1. HALCION [Suspect]
     Dosage: ORAL
     Route: 048
  2. URISPAS [Suspect]
     Indication: POLLAKIURIA
     Dosage: 400 MG, ORAL
     Route: 048
  3. SULPIRIDE [Concomitant]
  4. VALSARTAN (VALSARTAN) [Concomitant]
  5. FAMOTIDINE [Concomitant]

REACTIONS (7)
  - ALANINE AMINOTRANSFERASE INCREASED [None]
  - ASPARTATE AMINOTRANSFERASE INCREASED [None]
  - BILIRUBIN CONJUGATED INCREASED [None]
  - BLOOD BILIRUBIN UNCONJUGATED INCREASED [None]
  - CHOLESTASIS [None]
  - JAUNDICE [None]
  - PRURITUS [None]
